FAERS Safety Report 9851386 (Version 1)
Quarter: 2014Q1

REPORT INFORMATION
  Report Type: Report from Study
  Country: JP (occurrence: JP)
  Receive Date: 20140129
  Receipt Date: 20140129
  Transmission Date: 20141002
  Serious: Yes (Death)
  Sender: FDA-Public Use
  Company Number: JP-ROCHE-1337175

PATIENT
  Sex: Male
  Weight: 53 kg

DRUGS (10)
  1. METHOXY POLYETHYLENE GLYCOL-EPOETIN BETA [Suspect]
     Indication: NEPHROGENIC ANAEMIA
     Route: 058
     Dates: start: 20120912, end: 20130512
  2. LASIX [Concomitant]
     Indication: GLOMERULONEPHRITIS CHRONIC
     Route: 048
     Dates: end: 201212
  3. FLUITRAN [Concomitant]
     Indication: GLOMERULONEPHRITIS CHRONIC
     Route: 048
     Dates: end: 201212
  4. PREDONINE [Concomitant]
     Indication: GLOMERULONEPHRITIS CHRONIC
     Route: 048
     Dates: start: 20120702, end: 20121231
  5. NESINA [Concomitant]
     Indication: GLOMERULONEPHRITIS CHRONIC
     Route: 048
     Dates: start: 20120906, end: 20130114
  6. ALLOPURINOL [Concomitant]
     Route: 048
  7. AMLODIN [Concomitant]
     Route: 048
  8. ARTIST [Concomitant]
     Route: 048
  9. LIPITOR [Concomitant]
     Route: 048
  10. KREMEZIN [Concomitant]
     Indication: GLOMERULONEPHRITIS CHRONIC
     Route: 048
     Dates: start: 20120702, end: 20121231

REACTIONS (1)
  - Infection [Fatal]
